FAERS Safety Report 15347676 (Version 3)
Quarter: 2018Q4

REPORT INFORMATION
  Report Type: Spontaneous
  Country: US (occurrence: US)
  Receive Date: 20180904
  Receipt Date: 20181011
  Transmission Date: 20190204
  Serious: No
  Sender: FDA-Public Use
  Company Number: US-PFIZER INC-2018351910

PATIENT
  Age: 88 Year
  Sex: Female
  Weight: 58.96 kg

DRUGS (2)
  1. DETROL LA [Suspect]
     Active Substance: TOLTERODINE TARTRATE
     Indication: INCONTINENCE
     Dosage: UNK
     Dates: start: 2016
  2. DETROL LA [Suspect]
     Active Substance: TOLTERODINE TARTRATE
     Dosage: UNK
     Dates: start: 2018

REACTIONS (2)
  - Intentional product use issue [Unknown]
  - Drug ineffective [Unknown]
